FAERS Safety Report 18807382 (Version 1)
Quarter: 2021Q1

REPORT INFORMATION
  Report Type: Spontaneous
  Country: AU (occurrence: AU)
  Receive Date: 20210129
  Receipt Date: 20210129
  Transmission Date: 20210419
  Serious: Yes (Hospitalization, Disabling)
  Sender: FDA-Public Use
  Company Number: None

PATIENT
  Age: 24 Year
  Sex: Male
  Weight: 72 kg

DRUGS (2)
  1. VITAMIN D 600IU [Concomitant]
  2. FINASTERIDE 1MG [Suspect]
     Active Substance: FINASTERIDE
     Indication: ANDROGENETIC ALOPECIA
     Route: 048
     Dates: start: 20200529, end: 20200724

REACTIONS (3)
  - Libido decreased [None]
  - Insomnia [None]
  - Major depression [None]

NARRATIVE: CASE EVENT DATE: 20200728
